FAERS Safety Report 5133243-2 (Version None)
Quarter: 2006Q4

REPORT INFORMATION
  Report Type: 
  Country: None (occurrence: None)
  Receive Date: 20061018
  Receipt Date: 20061005
  Transmission Date: 20070319
  Serious: Yes (Hospitalization, Other)
  Sender: FDA-Public Use
  Company Number: 2006104033

PATIENT
  Age: 64 Year
  Sex: Female

DRUGS (9)
  1. ZYVOX [Suspect]
     Indication: INFECTION
     Dosage: 1200 MG (600 MG, 2 IN 1), INTRAVENOUS
     Route: 042
     Dates: start: 20060823, end: 20060901
  2. FUROSEMIDE [Concomitant]
  3. HEPARIN [Concomitant]
  4. LANSOPRAZOLE [Concomitant]
  5. K-DUR 10 [Concomitant]
  6. PRAVASTATIN [Concomitant]
  7. SERTRALINE [Concomitant]
  8. ASPIRIN [Concomitant]
  9. ACETAZOLAMIDE [Concomitant]

REACTIONS (3)
  - ERYTHEMA [None]
  - FEELING HOT [None]
  - FLUSHING [None]
